FAERS Safety Report 6163797-9 (Version None)
Quarter: 2009Q2

REPORT INFORMATION
  Report Type: 
  Country: None (occurrence: None)
  Receive Date: 20090420
  Receipt Date: 20081022
  Transmission Date: 20091009
  Serious: No
  Sender: FDA-Public Use
  Company Number: WAES 0810USA04567

PATIENT
  Sex: Male

DRUGS (1)
  1. TOP TRESADERM UNK [Suspect]
     Indication: DRUG ADMINISTRATION ERROR
     Dosage: /OPHT
     Route: 047
     Dates: start: 20081022

REACTIONS (3)
  - ACCIDENTAL EXPOSURE [None]
  - EYE IRRITATION [None]
  - WRONG DRUG ADMINISTERED [None]
